FAERS Safety Report 18971015 (Version 2)
Quarter: 2021Q2

REPORT INFORMATION
  Report Type: Report from Study
  Country: US (occurrence: US)
  Receive Date: 20210305
  Receipt Date: 20210423
  Transmission Date: 20210717
  Serious: No
  Sender: FDA-Public Use
  Company Number: US-ACADIA PHARMACEUTICALS INC.-ACA-2021-PIM-000527

PATIENT
  Sex: Male

DRUGS (23)
  1. ATROVENT HFA [Concomitant]
     Active Substance: IPRATROPIUM BROMIDE
  2. BUSPIRONE HCL [Concomitant]
     Active Substance: BUSPIRONE HYDROCHLORIDE
  3. FIORICET [Concomitant]
     Active Substance: ACETAMINOPHEN\BUTALBITAL\CAFFEINE
  4. XALATAN [Concomitant]
     Active Substance: LATANOPROST
  5. LORAZEPAM. [Concomitant]
     Active Substance: LORAZEPAM
  6. MELATONIN [Concomitant]
     Active Substance: MELATONIN
  7. METFORMIN HCL [Concomitant]
     Active Substance: METFORMIN HYDROCHLORIDE
  8. PEPCID [ALUMINIUM HYDROXIDE GEL, DRIED;MAGNESIUM CARBONATE] [Concomitant]
     Active Substance: ALUMINUM HYDROXIDE\MAGNESIUM CARBONATE
  9. WELLBUTRIN [Concomitant]
     Active Substance: BUPROPION HYDROCHLORIDE
     Dosage: UNK
  10. COMBIGAN [Concomitant]
     Active Substance: BRIMONIDINE TARTRATE\TIMOLOL MALEATE
  11. GABAPENTIN. [Concomitant]
     Active Substance: GABAPENTIN
  12. NITROGLYCERIN. [Concomitant]
     Active Substance: NITROGLYCERIN
  13. PLAVIX [Concomitant]
     Active Substance: CLOPIDOGREL BISULFATE
  14. NUPLAZID [Suspect]
     Active Substance: PIMAVANSERIN TARTRATE
     Indication: PARKINSON^S DISEASE
     Dosage: 34 MILLIGRAM, QD
     Route: 048
  15. NUPLAZID [Suspect]
     Active Substance: PIMAVANSERIN TARTRATE
     Dosage: 34 MILLIGRAM, QD
     Route: 048
     Dates: start: 20210209
  16. SERTRALINE HCL [Concomitant]
     Active Substance: SERTRALINE HYDROCHLORIDE
  17. ASPIRIN 81 [Concomitant]
     Active Substance: ASPIRIN
  18. NOVOLOG [Concomitant]
     Active Substance: INSULIN ASPART
  19. NYSTATIN. [Concomitant]
     Active Substance: NYSTATIN
  20. CYANOCOBALAMIN. [Concomitant]
     Active Substance: CYANOCOBALAMIN
  21. LANTUS [Concomitant]
     Active Substance: INSULIN GLARGINE
  22. MEMANTINE HCL [Concomitant]
     Active Substance: MEMANTINE
  23. SIMVASTATIN. [Concomitant]
     Active Substance: SIMVASTATIN

REACTIONS (1)
  - Hallucination [Not Recovered/Not Resolved]
